FAERS Safety Report 15215880 (Version 1)
Quarter: 2018Q3

REPORT INFORMATION
  Report Type: Spontaneous
  Country: US (occurrence: US)
  Receive Date: 20180703
  Receipt Date: 20180703
  Transmission Date: 20181010
  Serious: Yes (Hospitalization)
  Sender: FDA-Public Use
  Company Number: None

PATIENT
  Sex: Male

DRUGS (6)
  1. ERGOCALCIFER [Concomitant]
  2. VITAMIN D [Concomitant]
     Active Substance: CHOLECALCIFEROL
  3. RENATABA [Concomitant]
  4. ALBUTEROL NEB [Concomitant]
  5. ZARXIO [Suspect]
     Active Substance: FILGRASTIM-SNDZ
     Indication: AGRANULOCYTOSIS
     Route: 058
     Dates: start: 20180418
  6. FLUTICASONE. [Concomitant]
     Active Substance: FLUTICASONE

REACTIONS (1)
  - Hospitalisation [None]
